FAERS Safety Report 19994253 (Version 1)
Quarter: 2021Q4

REPORT INFORMATION
  Report Type: Report from Study
  Country: CH (occurrence: CH)
  Receive Date: 20211025
  Receipt Date: 20211025
  Transmission Date: 20220303
  Serious: Yes (Other)
  Sender: FDA-Public Use
  Company Number: CH-002147023-NVSC2021CH237694

PATIENT

DRUGS (1)
  1. RUXOLITINIB [Suspect]
     Active Substance: RUXOLITINIB
     Indication: Polycythaemia vera
     Dosage: UNK, BID
     Route: 065

REACTIONS (7)
  - Bone pain [Unknown]
  - Contusion [Unknown]
  - Haemorrhage [Unknown]
  - Early satiety [Unknown]
  - Pruritus [Unknown]
  - Epistaxis [Unknown]
  - Fatigue [Unknown]
